FAERS Safety Report 4494341-X (Version None)
Quarter: 2004Q4

REPORT INFORMATION
  Report Type: 
  Country: None (occurrence: None)
  Receive Date: 20041102
  Receipt Date: 20041019
  Transmission Date: 20050328
  Serious: Yes (Other)
  Sender: FDA-Public Use
  Company Number: FR_041005054

PATIENT
  Age: 26 Year
  Sex: Male

DRUGS (2)
  1. ZYPREXA [Suspect]
     Dosage: 10 MG/2 DAY
     Dates: start: 20040601
  2. LYSANXIA (PRAZEPAM) [Concomitant]

REACTIONS (3)
  - HYPERSOMNIA [None]
  - HYPERTENSION [None]
  - WEIGHT INCREASED [None]
